FAERS Safety Report 4997180-6 (Version None)
Quarter: 2006Q2

REPORT INFORMATION
  Report Type: 
  Country: None (occurrence: None)
  Receive Date: 20060505
  Receipt Date: 20060505
  Transmission Date: 20061013
  Serious: Yes (Other)
  Sender: FDA-Public Use
  Company Number: None

PATIENT
  Age: 89 Year
  Sex: Male
  Weight: 59 kg

DRUGS (1)
  1. PROMETHAZINE [Suspect]
     Indication: NAUSEA
     Dosage: 25MG ONE TIME IV
     Route: 042
     Dates: start: 20060417, end: 20060417

REACTIONS (2)
  - AGITATION [None]
  - CONFUSIONAL STATE [None]
